FAERS Safety Report 15751083 (Version 1)
Quarter: 2018Q4

REPORT INFORMATION
  Report Type: Spontaneous
  Country: US (occurrence: US)
  Receive Date: 20181206
  Receipt Date: 20181206
  Transmission Date: 20190205
  Serious: Yes (Hospitalization)
  Sender: FDA-Public Use
  Company Number: None

PATIENT
  Age: 83 Year
  Sex: Female

DRUGS (17)
  1. HYDRALAZINE [Concomitant]
     Active Substance: HYDRALAZINE HYDROCHLORIDE
  2. HYDROCHLOROT [Concomitant]
     Active Substance: HYDROCHLOROTHIAZIDE
  3. METFORMIN [Concomitant]
     Active Substance: METFORMIN HYDROCHLORIDE
  4. BUPROPN [Concomitant]
  5. FLUOXETINE [Concomitant]
     Active Substance: FLUOXETINE HYDROCHLORIDE
  6. MIRTAZAPINE. [Concomitant]
     Active Substance: MIRTAZAPINE
  7. OXYCODONE [Concomitant]
     Active Substance: OXYCODONE
  8. ROPINEROLE [Concomitant]
     Active Substance: ROPINIROLE
  9. CARB/LEVO [Concomitant]
     Active Substance: CARBIDOPA\LEVODOPA
  10. OXYCODONE [Concomitant]
     Active Substance: OXYCODONE
  11. QUETIAPINE. [Concomitant]
     Active Substance: QUETIAPINE
  12. RANITIDINE. [Concomitant]
     Active Substance: RANITIDINE
  13. ATORVASTATIN [Concomitant]
     Active Substance: ATORVASTATIN
  14. TETRABENAZINE. [Concomitant]
     Active Substance: TETRABENAZINE
  15. TETRABENAZINE. [Suspect]
     Active Substance: TETRABENAZINE
     Indication: PRODUCT USED FOR UNKNOWN INDICATION
     Route: 048
     Dates: start: 20170627
  16. METOPROLOL. [Concomitant]
     Active Substance: METOPROLOL
  17. RAMIPRIL. [Concomitant]
     Active Substance: RAMIPRIL

REACTIONS (1)
  - Cystitis [None]

NARRATIVE: CASE EVENT DATE: 20181130
